FAERS Safety Report 9542494 (Version 5)
Quarter: 2014Q2

REPORT INFORMATION
  Report Type: Report from Study
  Country: BR (occurrence: BR)
  Receive Date: 20130923
  Receipt Date: 20140403
  Transmission Date: 20141212
  Serious: Yes (Hospitalization, Other)
  Sender: FDA-Public Use
  Company Number: PHHY2013BR091153

PATIENT
  Age: 68 Year
  Sex: Male
  Weight: 98 kg

DRUGS (20)
  1. ONBREZ [Suspect]
     Indication: GAIT DISTURBANCE
     Dosage: 300 UG, QOD (2 CAPSULES)
     Dates: start: 201305
  2. ONBREZ [Suspect]
     Indication: OFF LABEL USE
  3. ONBREZ [Suspect]
     Indication: EMPHYSEMA
  4. MIFLONIDE [Suspect]
     Indication: EMPHYSEMA
     Dosage: 1 DF, Q12H
     Route: 055
     Dates: start: 201304, end: 201306
  5. MIFLONIDE [Suspect]
     Indication: GAIT DISTURBANCE
     Dosage: 2 DF, DAILY
     Route: 055
     Dates: start: 201305
  6. MIFLONIDE [Suspect]
     Indication: OFF LABEL USE
  7. MIFLONIDE [Suspect]
     Indication: CHRONIC OBSTRUCTIVE PULMONARY DISEASE
  8. METFORMIN [Suspect]
     Indication: DIABETES MELLITUS
     Dosage: 3 DF, DAILY
     Route: 048
  9. AMLODIPINE [Suspect]
     Dosage: 1 DF, DAILY
     Route: 048
  10. SIMVASTATIN [Suspect]
     Dosage: UNK UKN, UNK
  11. ATENOLOL [Suspect]
     Indication: CARDIAC DISORDER
     Dosage: 2 DF, DAILY
     Route: 048
  12. ROSULIB [Suspect]
     Indication: BLOOD CHOLESTEROL INCREASED
     Dosage: 1 DF, DAILY
  13. MEMANTINE HYDROCHLORIDE [Suspect]
     Dosage: UNK
  14. CAPOTEN [Suspect]
     Indication: CARDIAC DISORDER
     Dosage: 3 DF, DAILY
     Route: 048
  15. PLAQ [Suspect]
     Indication: ISCHAEMIA
     Dosage: 1 DF, DAILY
     Route: 048
  16. BETES [Suspect]
     Indication: DIABETES MELLITUS
     Dosage: 2 DF, DAILY
     Route: 048
  17. AAS [Suspect]
     Indication: ANTICOAGULANT THERAPY
     Dosage: 2 DF, DAILY
     Route: 048
  18. LASIX [Suspect]
     Indication: CARDIAC DISORDER
     Dosage: 2 DF, DAILY
     Route: 048
  19. VACCINES [Suspect]
     Dosage: UNK UKN, UNK
  20. DIAZEPAM [Concomitant]
     Indication: INSOMNIA
     Dosage: 1 DF, DAILY
     Route: 048

REACTIONS (14)
  - Malaise [Not Recovered/Not Resolved]
  - Peripheral swelling [Unknown]
  - Hypertension [Unknown]
  - Syncope [Unknown]
  - Dizziness [Unknown]
  - Dyspnoea [Unknown]
  - General physical condition abnormal [Not Recovered/Not Resolved]
  - Myocardial infarction [Recovering/Resolving]
  - Cardiac disorder [Recovering/Resolving]
  - Hypotension [Unknown]
  - Cataract [Unknown]
  - Nasopharyngitis [Recovering/Resolving]
  - Nasal congestion [Recovering/Resolving]
  - Insomnia [Recovering/Resolving]
